FAERS Safety Report 9988713 (Version 2)
Quarter: 2014Q1

REPORT INFORMATION
  Report Type: Spontaneous
  Country: JP (occurrence: JP)
  Receive Date: 20140310
  Receipt Date: 20140330
  Transmission Date: 20141002
  Serious: Yes (Life-Threatening, Hospitalization)
  Sender: FDA-Public Use
  Company Number: JP-TEVA-467181ISR

PATIENT
  Age: 59 Year
  Sex: Female

DRUGS (1)
  1. GEMCITABINE [Suspect]
     Indication: BREAST CANCER METASTATIC
     Dosage: 1250 MG/M2 FOR 14D FOLLOWED BY 7-D REST PERIOD
     Route: 065
     Dates: start: 201103

REACTIONS (2)
  - Tumour lysis syndrome [Recovering/Resolving]
  - Disseminated intravascular coagulation [Recovering/Resolving]
